FAERS Safety Report 9859834 (Version 2)
Quarter: 2014Q1

REPORT INFORMATION
  Report Type: Spontaneous
  Country: US (occurrence: US)
  Receive Date: 20140131
  Receipt Date: 20140210
  Transmission Date: 20141002
  Serious: Yes (Other)
  Sender: FDA-Public Use
  Company Number: US-TAKEDA-2014TUS000676

PATIENT
  Sex: 0

DRUGS (1)
  1. DEXILANT [Suspect]

REACTIONS (1)
  - Neoplasm malignant [Unknown]
